FAERS Safety Report 7750907-2 (Version None)
Quarter: 2011Q3

REPORT INFORMATION
  Report Type: 
  Country: None (occurrence: None)
  Receive Date: 20110914
  Receipt Date: 20110408
  Transmission Date: 20111222
  Serious: Yes (Life-Threatening, Other)
  Sender: FDA-Public Use
  Company Number: US-BAYER-2011-001507

PATIENT
  Age: 44 Year
  Sex: Female
  Weight: 52.608 kg

DRUGS (10)
  1. TETRACYCLINE [Concomitant]
     Dosage: UNK
     Dates: start: 20080620
  2. YAZ [Suspect]
     Indication: ACNE
     Dosage: UNK
     Dates: start: 20060601, end: 20091201
  3. CEPHALEXIN [Concomitant]
     Dosage: UNK
     Dates: start: 20070501
  4. CALCIUM CARBONATE [Concomitant]
  5. NSAID'S [Concomitant]
     Dosage: UNK UNK, PRN
  6. LYSINE [Concomitant]
  7. VEETIDS [Concomitant]
     Dosage: UNK
     Dates: start: 20010927
  8. AMOXICILLIN [Concomitant]
     Dosage: UNK
     Dates: start: 20060606
  9. CEPHALEXIN [Concomitant]
     Dosage: UNK
     Dates: start: 20070201
  10. TETRACYCLINE [Concomitant]
     Dosage: UNK
     Dates: start: 20090301

REACTIONS (11)
  - INTRACRANIAL VENOUS SINUS THROMBOSIS [None]
  - PAIN [None]
  - EMOTIONAL DISTRESS [None]
  - CONVULSION [None]
  - LOSS OF CONSCIOUSNESS [None]
  - PULSE PRESSURE DECREASED [None]
  - PAIN IN EXTREMITY [None]
  - DISORIENTATION [None]
  - MUSCULOSKELETAL STIFFNESS [None]
  - ANXIETY [None]
  - DYSARTHRIA [None]
